FAERS Safety Report 7789480-1 (Version None)
Quarter: 2011Q3

REPORT INFORMATION
  Report Type: 
  Country: None (occurrence: None)
  Receive Date: 20110930
  Receipt Date: 20110921
  Transmission Date: 20111222
  Serious: Yes (Hospitalization)
  Sender: FDA-Public Use
  Company Number: JP-JNJFOC-20110609139

PATIENT
  Sex: Male
  Weight: 63 kg

DRUGS (13)
  1. INVEGA [Suspect]
     Route: 048
     Dates: start: 20110414, end: 20110427
  2. ASPIRIN [Suspect]
     Indication: MYOCARDIAL INFARCTION
     Route: 048
     Dates: start: 20081105, end: 20110611
  3. FLUDECASIN [Concomitant]
     Indication: PRODUCT USED FOR UNKNOWN INDICATION
     Route: 030
  4. PINDOLOL [Concomitant]
     Indication: HYPERTENSION
     Route: 048
     Dates: end: 20110611
  5. PROMAZINE HYDROCHLORIDE [Concomitant]
     Indication: SCHIZOPHRENIA
     Route: 048
     Dates: end: 20110611
  6. TASMOLIN [Concomitant]
     Indication: PRODUCT USED FOR UNKNOWN INDICATION
     Route: 048
     Dates: end: 20110611
  7. ROHYPNOL [Concomitant]
     Indication: SCHIZOPHRENIA
     Route: 048
     Dates: end: 20110611
  8. INVEGA [Suspect]
     Indication: SCHIZOPHRENIA
     Route: 048
     Dates: start: 20110428, end: 20110611
  9. METFORMIN HCL [Concomitant]
     Indication: DIABETES MELLITUS
     Route: 048
     Dates: end: 20110611
  10. GOODMIN [Concomitant]
     Indication: SCHIZOPHRENIA
     Route: 048
     Dates: end: 20110611
  11. MAGMITT [Concomitant]
     Indication: CONSTIPATION
     Route: 048
     Dates: start: 20090707, end: 20110611
  12. FAMOTIDINE [Concomitant]
     Indication: PRODUCT USED FOR UNKNOWN INDICATION
     Route: 048
     Dates: start: 20100813, end: 20110611
  13. ACTOS [Concomitant]
     Indication: DIABETES MELLITUS
     Route: 048
     Dates: start: 20080914, end: 20110611

REACTIONS (3)
  - SUBDURAL HAEMORRHAGE [None]
  - FALL [None]
  - PUTAMEN HAEMORRHAGE [None]
